FAERS Safety Report 7592005-7 (Version None)
Quarter: 2011Q3

REPORT INFORMATION
  Report Type: 
  Country: None (occurrence: None)
  Receive Date: 20110705
  Receipt Date: 20110705
  Transmission Date: 20111222
  Serious: Yes (Other)
  Sender: FDA-Public Use
  Company Number: None

PATIENT
  Age: 64 Year
  Sex: Female
  Weight: 65.7716 kg

DRUGS (1)
  1. OXYCODONE AND ACETAMINOPHEN [Suspect]
     Indication: PROCEDURAL PAIN
     Dosage: 1 - 2 TABLETS EVERY 4 HOURS PO
     Route: 048
     Dates: start: 20110608, end: 20110627

REACTIONS (4)
  - NAUSEA [None]
  - BLOOD PRESSURE ABNORMAL [None]
  - HAEMATEMESIS [None]
  - HAEMATOCHEZIA [None]
